FAERS Safety Report 6177458-3 (Version None)
Quarter: 2009Q2

REPORT INFORMATION
  Report Type: 
  Country: None (occurrence: None)
  Receive Date: 20090501
  Receipt Date: 20090501
  Transmission Date: 20091009
  Serious: Yes (Life-Threatening, Hospitalization)
  Sender: FDA-Public Use
  Company Number: None

PATIENT
  Age: 75 Year
  Sex: Male

DRUGS (9)
  1. WARFARIN SODIUM [Suspect]
     Indication: ATRIAL FIBRILLATION
     Dosage: 2.5MG PO QD
     Route: 048
  2. WARFARIN SODIUM [Suspect]
     Indication: DEEP VEIN THROMBOSIS
     Dosage: 2.5MG PO QD
     Route: 048
  3. WARFARIN SODIUM [Suspect]
     Indication: PULMONARY EMBOLISM
     Dosage: 2.5MG PO QD
     Route: 048
  4. ESCITALOPRAM [Concomitant]
  5. IRON [Concomitant]
  6. LISINOPRIL [Concomitant]
  7. METOPROLOL [Concomitant]
  8. LANSOPRAZOLE [Concomitant]
  9. SIMVASTATIN [Concomitant]

REACTIONS (4)
  - DUODENAL ULCER [None]
  - GASTROINTESTINAL HAEMORRHAGE [None]
  - HAEMOGLOBIN DECREASED [None]
  - INTERNATIONAL NORMALISED RATIO INCREASED [None]
